FAERS Safety Report 9531554 (Version 3)
Quarter: 2013Q3

REPORT INFORMATION
  Report Type: Spontaneous
  Country: JP (occurrence: JP)
  Receive Date: 20130918
  Receipt Date: 20130919
  Transmission Date: 20140515
  Serious: Yes (Hospitalization)
  Sender: FDA-Public Use
  Company Number: JP-B.I. PHARMACEUTICALS,INC./RIDGEFIELD-2013-BI-28311NB

PATIENT
  Age: 75 Year
  Sex: Male
  Weight: 69 kg

DRUGS (6)
  1. PRAZAXA [Suspect]
     Indication: CEREBROVASCULAR ACCIDENT PROPHYLAXIS
     Dosage: 220 MG
     Route: 048
     Dates: end: 20130903
  2. PRAZAXA [Suspect]
     Indication: ATRIAL FIBRILLATION
  3. NORVASC OD [Concomitant]
     Indication: HYPERTENSION
     Dosage: 10 MG
     Route: 048
  4. LIVALO [Concomitant]
     Indication: HYPERCHOLESTEROLAEMIA
     Dosage: 2 MG
     Route: 048
  5. SELARA [Concomitant]
     Indication: HYPERTENSION
     Dosage: 50 MG
     Route: 048
  6. OMEPRAL [Concomitant]
     Indication: GASTROOESOPHAGEAL REFLUX DISEASE
     Dosage: 20 MG
     Route: 048

REACTIONS (4)
  - Renal failure acute [Not Recovered/Not Resolved]
  - Activated partial thromboplastin time prolonged [Unknown]
  - Urinary tract infection [Unknown]
  - Cholecystitis infective [Unknown]
